FAERS Safety Report 9498181 (Version 2)
Quarter: 2013Q4

REPORT INFORMATION
  Report Type: Spontaneous
  Country: US (occurrence: US)
  Receive Date: 20130904
  Receipt Date: 20131122
  Transmission Date: 20140711
  Serious: Yes (Hospitalization, Other)
  Sender: FDA-Public Use
  Company Number: US-ELI_LILLY_AND_COMPANY-US201308008136

PATIENT
  Sex: Female
  Weight: 103.8 kg

DRUGS (1)
  1. HUMATROPE [Suspect]
     Indication: PRODUCT USED FOR UNKNOWN INDICATION
     Dosage: 0.2 MG, QD
     Route: 058
     Dates: start: 2002, end: 20130820

REACTIONS (1)
  - Intraductal proliferative breast lesion [Recovered/Resolved]
